FAERS Safety Report 7458529-8 (Version None)
Quarter: 2011Q2

REPORT INFORMATION
  Report Type: 
  Country: None (occurrence: None)
  Receive Date: 20110504
  Receipt Date: 20110428
  Transmission Date: 20111010
  Serious: Yes (Hospitalization)
  Sender: FDA-Public Use
  Company Number: PHHY2011JP35399

PATIENT
  Age: 80 Year
  Sex: Male
  Weight: 46 kg

DRUGS (5)
  1. ISONIAZID [Suspect]
     Dosage: UNK UKN, UNK
     Dates: start: 20080407
  2. RIFAMPICIN [Suspect]
     Indication: ATYPICAL MYCOBACTERIAL INFECTION
     Dosage: 750 MG/DAY
     Route: 048
     Dates: start: 20080724, end: 20080725
  3. EBUTOL [Suspect]
     Indication: ATYPICAL MYCOBACTERIAL INFECTION
     Dosage: 750 MG, DAILY
     Route: 048
     Dates: start: 20080714, end: 20080725
  4. ISONIAZID [Suspect]
     Indication: ATYPICAL MYCOBACTERIAL INFECTION
     Dosage: 200 MG/DAY
     Route: 048
     Dates: start: 20080714, end: 20080722
  5. EBUTOL [Suspect]
     Dosage: UNK UKN, UNK
     Dates: start: 20080407

REACTIONS (4)
  - RESPIRATORY DISTRESS [None]
  - DEHYDRATION [None]
  - HEPATIC FUNCTION ABNORMAL [None]
  - DECREASED APPETITE [None]
